FAERS Safety Report 15994261 (Version 1)
Quarter: 2019Q1

REPORT INFORMATION
  Report Type: Spontaneous
  Country: US (occurrence: US)
  Receive Date: 20190222
  Receipt Date: 20190222
  Transmission Date: 20190418
  Serious: No
  Sender: FDA-Public Use
  Company Number: US-TEVA-2019-US-1004245

PATIENT
  Sex: Female

DRUGS (5)
  1. QVAR [Suspect]
     Active Substance: BECLOMETHASONE DIPROPIONATE
     Route: 065
     Dates: end: 201901
  2. QVAR [Suspect]
     Active Substance: BECLOMETHASONE DIPROPIONATE
     Route: 065
     Dates: end: 2018
  3. QVAR REDIHALER [Suspect]
     Active Substance: BECLOMETHASONE DIPROPIONATE
     Route: 065
     Dates: start: 201812, end: 201901
  4. QNASL [Suspect]
     Active Substance: BECLOMETHASONE DIPROPIONATE
     Indication: NASAL POLYPS
     Route: 065
     Dates: start: 201901
  5. QVAR [Suspect]
     Active Substance: BECLOMETHASONE DIPROPIONATE
     Route: 045

REACTIONS (12)
  - Rhinalgia [Recovered/Resolved]
  - Obstructive airways disorder [Unknown]
  - Cough [Recovering/Resolving]
  - Product use in unapproved indication [Unknown]
  - Bronchial irritation [Recovering/Resolving]
  - Nasal discomfort [Recovered/Resolved]
  - General physical health deterioration [Unknown]
  - Wrong technique in product usage process [Unknown]
  - Nasal congestion [Recovered/Resolved]
  - Throat irritation [Recovering/Resolving]
  - Incorrect route of product administration [Unknown]
  - Product substitution issue [Unknown]

NARRATIVE: CASE EVENT DATE: 201901
